FAERS Safety Report 19900404 (Version 1)
Quarter: 2021Q3

REPORT INFORMATION
  Report Type: Report from Study
  Country: US (occurrence: US)
  Receive Date: 20210930
  Receipt Date: 20210930
  Transmission Date: 20211014
  Serious: Yes (Hospitalization)
  Sender: FDA-Public Use
  Company Number: US-MYLANLABS-2021M1067278

PATIENT
  Age: 68 Year

DRUGS (4)
  1. MOXIFLOXACIN. [Suspect]
     Active Substance: MOXIFLOXACIN
     Indication: ANTIBIOTIC PROPHYLAXIS
     Dosage: UNK
     Route: 065
  2. VORICONAZOLE. [Concomitant]
     Active Substance: VORICONAZOLE
     Indication: ANTIFUNGAL PROPHYLAXIS
     Dosage: UNK
     Route: 065
  3. CYTARABINE. [Suspect]
     Active Substance: CYTARABINE
     Indication: ACUTE MYELOID LEUKAEMIA
     Dosage: DOSE: 3 G/M2 EVERY 12 H ON DAYS 1, 3, AND 5, FIRST AND SECOND CYCLE
     Route: 065
  4. CYTARABINE. [Suspect]
     Active Substance: CYTARABINE
     Dosage: DOSE: 1.5 G/M2 EVERY 12 H ON DAYS 1, 3, AND 5, THIRD CYCLE
     Route: 065

REACTIONS (4)
  - Staphylococcal infection [Unknown]
  - Streptococcal infection [Unknown]
  - Pathogen resistance [Unknown]
  - Febrile neutropenia [Unknown]
